FAERS Safety Report 9340572 (Version 2)
Quarter: 2013Q2

REPORT INFORMATION
  Report Type: Spontaneous
  Country: IT (occurrence: IT)
  Receive Date: 20130610
  Receipt Date: 20130620
  Transmission Date: 20140414
  Serious: Yes (Death)
  Sender: FDA-Public Use
  Company Number: PHHY2013IT058204

PATIENT
  Age: 52 Year
  Sex: Female

DRUGS (12)
  1. FLUDARABINE [Suspect]
     Indication: ACUTE MYELOID LEUKAEMIA
     Dosage: 52.6 MG, QD
     Route: 042
     Dates: start: 20130323, end: 20130327
  2. ZAVEDOS [Suspect]
     Indication: ACUTE MYELOID LEUKAEMIA
     Dosage: 17.5 MG, QOD
     Route: 042
     Dates: start: 20130323, end: 20130325
  3. ZOFRAN [Suspect]
     Indication: VOMITING
     Dosage: 24 MG, QD
     Route: 042
     Dates: start: 20130323, end: 20130328
  4. CITARABINA HOSPIRA [Suspect]
     Indication: ACUTE MYELOID LEUKAEMIA
     Dosage: 1750 MG, QD
     Route: 042
     Dates: start: 20130323, end: 20130327
  5. ALLOPURINOL [Concomitant]
     Indication: HYPERURICAEMIA
     Dosage: 300 MG, UNK
     Route: 048
     Dates: start: 20130320, end: 20130328
  6. DOMPERIDONE [Concomitant]
     Indication: VOMITING
     Route: 048
     Dates: start: 20130321, end: 20130327
  7. LUXAZONE [Concomitant]
     Dosage: 3 DRP, UNK
     Dates: start: 20130323, end: 20130329
  8. MYCOSTATIN [Concomitant]
     Dosage: 30 ML, UNK
     Dates: start: 20130322, end: 20130330
  9. MEPRAL [Concomitant]
     Route: 048
     Dates: start: 20130321, end: 20130327
  10. LEVOXACIN [Concomitant]
     Dosage: 500 MG
     Route: 048
     Dates: start: 20130327, end: 20130330
  11. DECADRON [Concomitant]
     Indication: ACUTE MYELOID LEUKAEMIA
     Dosage: 8 MG, UNK
     Route: 042
     Dates: start: 20130323, end: 20130327
  12. MINIAS [Concomitant]
     Dosage: 10 DRP, UNK
     Route: 048
     Dates: start: 20130319, end: 20130330

REACTIONS (3)
  - Cardiac arrest [Fatal]
  - Ventricular arrhythmia [Fatal]
  - Torsade de pointes [Fatal]
